FAERS Safety Report 6312397-6 (Version None)
Quarter: 2009Q3

REPORT INFORMATION
  Report Type: 
  Country: None (occurrence: None)
  Receive Date: 20090813
  Receipt Date: 20090731
  Transmission Date: 20100115
  Serious: Yes (Other)
  Sender: FDA-Public Use
  Company Number: DE-GDP-09406392

PATIENT
  Sex: Male

DRUGS (2)
  1. METVIXIA [Suspect]
     Indication: ACTINIC KERATOSIS
     Dosage: 1 DF TOPICAL
     Route: 061
     Dates: start: 20061101
  2. METVIXIA [Suspect]
     Indication: ACTINIC KERATOSIS
     Dosage: 1 DF TOPICAL
     Route: 061
     Dates: start: 20080301

REACTIONS (1)
  - GASTROINTESTINAL CARCINOMA [None]
